FAERS Safety Report 24852035 (Version 3)
Quarter: 2025Q1

REPORT INFORMATION
  Report Type: Report from Study
  Country: US (occurrence: US)
  Receive Date: 20250116
  Receipt Date: 20250218
  Transmission Date: 20250409
  Serious: Yes (Other)
  Sender: ABBVIE
  Company Number: US-ABBVIE-5988586

PATIENT
  Age: 72 Year
  Sex: Female
  Weight: 71 kg

DRUGS (3)
  1. HUMIRA [Suspect]
     Active Substance: ADALIMUMAB
     Indication: Crohn^s disease
     Route: 058
     Dates: start: 20211028
  2. HUMIRA [Suspect]
     Active Substance: ADALIMUMAB
     Dosage: STOP DATE: LAST WEEK OF -DEC-2015
     Route: 058
     Dates: start: 20151110, end: 201512
  3. AMLODIPINE [Concomitant]
     Active Substance: AMLODIPINE BESYLATE
     Indication: Hypertension

REACTIONS (5)
  - Cartilage atrophy [Recovering/Resolving]
  - Osteoarthritis [Recovering/Resolving]
  - Crohn^s disease [Unknown]
  - Arthralgia [Recovering/Resolving]
  - Joint stiffness [Recovering/Resolving]

NARRATIVE: CASE EVENT DATE: 20230101
